FAERS Safety Report 8977694 (Version 1)
Quarter: 2012Q4

REPORT INFORMATION
  Report Type: 
  Country: FR (occurrence: FR)
  Receive Date: 20121219
  Receipt Date: 20121219
  Transmission Date: 20130627
  Serious: Yes (Hospitalization, Other)
  Sender: FDA-Public Use
  Company Number: FR-ASTRAZENECA-2012SE92698

PATIENT
  Age: 88 Year
  Sex: Female

DRUGS (3)
  1. INEXIUM [Suspect]
     Route: 048
     Dates: start: 2012
  2. EFFEXOR [Interacting]
     Route: 048
     Dates: start: 2012
  3. FUROSEMIDE\SPIRONOLACTONE [Interacting]
     Route: 048
     Dates: start: 2012, end: 20121023

REACTIONS (3)
  - Drug interaction [Recovered/Resolved]
  - Hyponatraemia [Recovered/Resolved]
  - Constipation [Unknown]
